FAERS Safety Report 9272579 (Version 1)
Quarter: 2013Q2

REPORT INFORMATION
  Report Type: Spontaneous
  Country: US (occurrence: US)
  Receive Date: 20130506
  Receipt Date: 20130506
  Transmission Date: 20140414
  Serious: No
  Sender: FDA-Public Use
  Company Number: US-ASTRAZENECA-2012SE96580

PATIENT
  Age: 44 Year
  Sex: Male

DRUGS (2)
  1. PRILOSEC OTC [Suspect]
     Indication: PRODUCT USED FOR UNKNOWN INDICATION
     Route: 048
  2. TAGAMET [Concomitant]

REACTIONS (1)
  - Rectal discharge [Unknown]
